FAERS Safety Report 8154413-5 (Version None)
Quarter: 2012Q1

REPORT INFORMATION
  Report Type: 
  Country: None (occurrence: None)
  Receive Date: 20120221
  Receipt Date: 20120208
  Transmission Date: 20120608
  Serious: Yes (Hospitalization, Other)
  Sender: FDA-Public Use
  Company Number: US-MYLANLABS-2012S1003449

PATIENT
  Sex: Female
  Weight: 97.5 kg

DRUGS (13)
  1. LISINOPRIL [Concomitant]
  2. METFORMIN HCL [Concomitant]
  3. PRILOSEC [Concomitant]
  4. ATENOLOL [Concomitant]
  5. NASONEX [Concomitant]
  6. GLIMEPIRIDE [Concomitant]
  7. SOTALOL HCL [Concomitant]
  8. HYDROCHLOROTHIAZIDE [Concomitant]
  9. ASPIRIN [Concomitant]
  10. PRILOSEC [Concomitant]
  11. DIGOXIN [Suspect]
     Route: 048
     Dates: start: 19970823, end: 20081010
  12. MAGNESIUM [Concomitant]
  13. PULMICORT-100 [Concomitant]

REACTIONS (26)
  - TOXICITY TO VARIOUS AGENTS [None]
  - FOREIGN BODY [None]
  - DIABETES MELLITUS [None]
  - HYPOMAGNESAEMIA [None]
  - OEDEMA PERIPHERAL [None]
  - HEART RATE INCREASED [None]
  - DYSPNOEA EXERTIONAL [None]
  - FLANK PAIN [None]
  - SINUSITIS [None]
  - PALPITATIONS [None]
  - VISION BLURRED [None]
  - FLUSHING [None]
  - CARDIOACTIVE DRUG LEVEL INCREASED [None]
  - HYPERTENSION [None]
  - THYROID NEOPLASM [None]
  - CARDIAC MURMUR [None]
  - ATRIAL FIBRILLATION [None]
  - HYPERHIDROSIS [None]
  - EXOPHTHALMOS [None]
  - SICK SINUS SYNDROME [None]
  - BREAST MASS [None]
  - TACHYCARDIA PAROXYSMAL [None]
  - HEPATIC CYST [None]
  - COLD SWEAT [None]
  - RENAL CYST [None]
  - NAUSEA [None]
